FAERS Safety Report 4515297-7 (Version None)
Quarter: 2004Q4

REPORT INFORMATION
  Report Type: 
  Country: None (occurrence: None)
  Receive Date: 20041126
  Receipt Date: 20041116
  Transmission Date: 20050328
  Serious: Yes (Other)
  Sender: FDA-Public Use
  Company Number: 2004-11-0939

PATIENT
  Age: 63 Year
  Sex: Female

DRUGS (1)
  1. CELESTONE [Suspect]
     Indication: PEMPHIGUS
     Dosage: 3-6 MG ORAL
     Route: 048
     Dates: start: 19840101

REACTIONS (4)
  - FAT NECROSIS [None]
  - SKIN ATROPHY [None]
  - SUBCUTANEOUS NODULE [None]
  - TENDERNESS [None]
